FAERS Safety Report 10548167 (Version 1)
Quarter: 2014Q4

REPORT INFORMATION
  Report Type: Spontaneous
  Country: US (occurrence: None)
  Receive Date: 20141027
  Receipt Date: 20141027
  Transmission Date: 20150529
  Serious: Yes (Hospitalization)
  Sender: FDA-Public Use
  Company Number: None

PATIENT
  Age: 49 Year
  Sex: Male
  Weight: 82.7 kg

DRUGS (14)
  1. OMEPRAZOLE. [Concomitant]
     Active Substance: OMEPRAZOLE
  2. ALDACTONE [Concomitant]
     Active Substance: SPIRONOLACTONE
  3. SIMETHICON [Concomitant]
  4. SOFASBUVIR [Suspect]
     Active Substance: SOFOSBUVIR
     Indication: HEPATITIS C
     Route: 048
     Dates: start: 20140403, end: 20140626
  5. WELLBUTRIN [Concomitant]
     Active Substance: BUPROPION HYDROCHLORIDE
  6. MULTIVITAMIN [Concomitant]
     Active Substance: VITAMINS
  7. NAMENDA [Concomitant]
     Active Substance: MEMANTINE HYDROCHLORIDE
  8. LORAZEPAM. [Concomitant]
     Active Substance: LORAZEPAM
  9. SEROQUEL [Concomitant]
     Active Substance: QUETIAPINE FUMARATE
  10. TRAZODONE [Concomitant]
     Active Substance: TRAZODONE HYDROCHLORIDE
  11. METAMUCIL [Concomitant]
     Active Substance: PLANTAGO SEED
  12. SIMEPREVIR 150MG JANSSEN [Suspect]
     Active Substance: SIMEPREVIR
     Indication: HEPATITIS C
     Route: 048
     Dates: start: 20140403, end: 20140626
  13. ARICEPT [Concomitant]
     Active Substance: DONEPEZIL HYDROCHLORIDE
  14. NADOLOL. [Concomitant]
     Active Substance: NADOLOL

REACTIONS (6)
  - Electrocardiogram QT prolonged [None]
  - Sinus arrhythmia [None]
  - Atrioventricular block first degree [None]
  - Pneumonia [None]
  - Acute respiratory failure [None]
  - Thrombocytopenia [None]

NARRATIVE: CASE EVENT DATE: 20140426
